FAERS Safety Report 8271937 (Version 4)
Quarter: 2014Q2

REPORT INFORMATION
  Report Type: Spontaneous
  Country: JP (occurrence: JP)
  Receive Date: 20111202
  Receipt Date: 20131017
  Transmission Date: 20141212
  Serious: Yes (Other)
  Sender: FDA-Public Use
  Company Number: JP-PFIZER INC-2011290006

PATIENT
  Age: 42 Year
  Sex: Female

DRUGS (1)
  1. SOLU-CORTEF [Suspect]

REACTIONS (1)
  - Shock [Recovered/Resolved]
